FAERS Safety Report 7598657-X (Version None)
Quarter: 2011Q3

REPORT INFORMATION
  Report Type: 
  Country: None (occurrence: None)
  Receive Date: 20110711
  Receipt Date: 20110630
  Transmission Date: 20111222
  Serious: Yes (Other)
  Sender: FDA-Public Use
  Company Number: DE-BIOGENIDEC-2011BI018472

PATIENT
  Age: 37 Year
  Sex: Female

DRUGS (3)
  1. TYSABRI [Suspect]
     Indication: MULTIPLE SCLEROSIS
     Route: 042
     Dates: start: 20080701
  2. MIRTAZAPINE [Concomitant]
     Indication: DEPRESSION
  3. SERTRALIN [Concomitant]
     Indication: DEPRESSION

REACTIONS (1)
  - SKIN ULCER [None]
